FAERS Safety Report 7907983-3 (Version None)
Quarter: 2011Q4

REPORT INFORMATION
  Report Type: 
  Country: None (occurrence: None)
  Receive Date: 20111110
  Receipt Date: 20111101
  Transmission Date: 20120403
  Serious: Yes (Other)
  Sender: FDA-Public Use
  Company Number: US-ASTRAZENECA-2011SE60306

PATIENT
  Age: 41 Year
  Sex: Female

DRUGS (2)
  1. ALBUTEROL [Concomitant]
  2. ACCOLATE [Suspect]
     Route: 048

REACTIONS (10)
  - TRANSIENT ISCHAEMIC ATTACK [None]
  - NEUROPATHY PERIPHERAL [None]
  - BLOOD DISORDER [None]
  - GLUCOSE TOLERANCE IMPAIRED [None]
  - CORNEAL DISORDER [None]
  - DRUG DOSE OMISSION [None]
  - ASTHMA [None]
  - MULTIPLE SCLEROSIS [None]
  - PLATELET COUNT ABNORMAL [None]
  - PELVIC DEFORMITY [None]
